FAERS Safety Report 20079427 (Version 2)
Quarter: 2021Q4

REPORT INFORMATION
  Report Type: Spontaneous
  Country: US (occurrence: US)
  Receive Date: 20211117
  Receipt Date: 20211125
  Transmission Date: 20220303
  Serious: Yes (Hospitalization, Other)
  Sender: FDA-Public Use
  Company Number: US-SA-SAC20211115000988

PATIENT
  Sex: Female

DRUGS (1)
  1. DUPIXENT [Suspect]
     Active Substance: DUPILUMAB
     Indication: Dermatitis atopic
     Dosage: 300 MG, QOW
     Route: 003

REACTIONS (6)
  - Seizure [Unknown]
  - Cerebrovascular accident [Unknown]
  - Skin discolouration [Unknown]
  - Skin exfoliation [Unknown]
  - Therapeutic response decreased [Unknown]
  - Incorrect route of product administration [Unknown]
